FAERS Safety Report 7741120-3 (Version None)
Quarter: 2011Q3

REPORT INFORMATION
  Report Type: 
  Country: None (occurrence: None)
  Receive Date: 20110909
  Receipt Date: 20110901
  Transmission Date: 20111222
  Serious: Yes (Other)
  Sender: FDA-Public Use
  Company Number: FR-VERTEX PHARMACEUTICALS INC.-AE-2011-000146

PATIENT
  Sex: Female
  Weight: 103 kg

DRUGS (10)
  1. RIBAVIRIN [Concomitant]
     Indication: HEPATITIS C
     Route: 048
  2. RIBAVIRIN [Concomitant]
     Route: 048
  3. PEGINTERFERON ALFA-2A [Concomitant]
     Indication: HEPATITIS C
     Route: 058
  4. NEXIUM [Concomitant]
     Indication: ABDOMINAL PAIN UPPER
  5. RIBAVIRIN [Concomitant]
     Route: 048
  6. PROPRANOLOL [Concomitant]
     Indication: PORTAL HYPERTENSION
  7. CITALOPRAM HYDROBROMIDE [Concomitant]
     Indication: DEPRESSION
  8. VX-950 [Suspect]
     Indication: HEPATITIS C
     Route: 048
     Dates: start: 20110314, end: 20110605
  9. DEDROGYL [Concomitant]
  10. CANDESARTAN CILEXETIL [Concomitant]
     Indication: HYPERTENSION

REACTIONS (2)
  - ANAEMIA [None]
  - NEUTROPENIA [None]
